FAERS Safety Report 9466915 (Version 1)
Quarter: 2013Q3

REPORT INFORMATION
  Report Type: Spontaneous
  Country: DE (occurrence: DE)
  Receive Date: 20130820
  Receipt Date: 20130820
  Transmission Date: 20140515
  Serious: Yes (Other)
  Sender: FDA-Public Use
  Company Number: DE-PFIZER INC-2013236377

PATIENT
  Sex: Female

DRUGS (1)
  1. DEPO-CLINOVIR [Suspect]
     Dosage: 1 DF, EVERY 3 MONTHS
     Dates: start: 1999

REACTIONS (3)
  - Optic neuritis [Not Recovered/Not Resolved]
  - Visual impairment [Not Recovered/Not Resolved]
  - Diplopia [Not Recovered/Not Resolved]
